FAERS Safety Report 17905686 (Version 1)
Quarter: 2020Q2

REPORT INFORMATION
  Report Type: Spontaneous
  Country: CA (occurrence: CA)
  Receive Date: 20200617
  Receipt Date: 20200617
  Transmission Date: 20200714
  Serious: Yes (Other)
  Sender: FDA-Public Use
  Company Number: CA-TEVA-2020-CA-1714579

PATIENT
  Age: 56 Year
  Sex: Female

DRUGS (2)
  1. METHOTREXATE. [Suspect]
     Active Substance: METHOTREXATE
     Indication: RHEUMATOID ARTHRITIS
     Dosage: 25 MG
     Route: 065
  2. MOBICOX [Concomitant]
     Active Substance: MELOXICAM
     Dosage: 15 MILLIGRAM DAILY;

REACTIONS (3)
  - Herpes zoster [Unknown]
  - Muscle disorder [Unknown]
  - Alopecia [Unknown]
